FAERS Safety Report 17620401 (Version 1)
Quarter: 2020Q2

REPORT INFORMATION
  Report Type: Spontaneous
  Country: IE (occurrence: IE)
  Receive Date: 20200403
  Receipt Date: 20200403
  Transmission Date: 20200713
  Serious: Yes (Other)
  Sender: FDA-Public Use
  Company Number: IE-ROCHE-2572971

PATIENT

DRUGS (1)
  1. ACTEMRA [Suspect]
     Active Substance: TOCILIZUMAB
     Indication: CORONAVIRUS INFECTION
     Route: 042

REACTIONS (13)
  - Thrombocytopenia [Unknown]
  - Alanine aminotransferase increased [Unknown]
  - Nasopharyngitis [Unknown]
  - Off label use [Unknown]
  - Aspartate aminotransferase increased [Unknown]
  - Injection site reaction [Unknown]
  - Upper respiratory tract infection [Unknown]
  - Infection susceptibility increased [Unknown]
  - Hypertension [Unknown]
  - Neutropenia [Unknown]
  - Gastric perforation [Unknown]
  - Liver injury [Unknown]
  - Headache [Unknown]
